FAERS Safety Report 13051839 (Version 4)
Quarter: 2017Q1

REPORT INFORMATION
  Report Type: Spontaneous
  Country: JP (occurrence: JP)
  Receive Date: 20161221
  Receipt Date: 20170309
  Transmission Date: 20170428
  Serious: Yes (Death, Hospitalization, Other)
  Sender: FDA-Public Use
  Company Number: JP-TEVA-720563ISR

PATIENT
  Age: 89 Year
  Sex: Female

DRUGS (4)
  1. BENET 75 MG [Suspect]
     Active Substance: RISEDRONIC ACID
     Indication: OSTEOPOROSIS
     Dosage: 75 MG, 1/MONTH
     Route: 048
     Dates: start: 20130902, end: 20160315
  2. TEPRENONE [Concomitant]
     Active Substance: TEPRENONE
     Route: 048
  3. ELCITONIN INJECTION 20S [Concomitant]
     Active Substance: ELCATONIN
     Indication: OSTEOPOROSIS
     Dosage: 1 MILILITER/DAY
     Dates: start: 20130826, end: 20140212
  4. CELECOX [Concomitant]
     Active Substance: CELECOXIB
     Route: 048

REACTIONS (3)
  - Cervix carcinoma [Fatal]
  - Renal impairment [Unknown]
  - Haemorrhage [Unknown]

NARRATIVE: CASE EVENT DATE: 201602
